FAERS Safety Report 24570423 (Version 1)
Quarter: 2024Q4

REPORT INFORMATION
  Report Type: Spontaneous
  Country: US (occurrence: None)
  Receive Date: 20241031
  Receipt Date: 20241031
  Transmission Date: 20250114
  Serious: Yes (Other)
  Sender: Public
  Company Number: None

PATIENT
  Sex: Male

DRUGS (2)
  1. BUPRENORPHINE [Suspect]
     Active Substance: BUPRENORPHINE
     Dosage: FREQUENCY : TWICE A DAY;?
     Route: 048
     Dates: start: 20241030
  2. NALOXONE [Suspect]
     Active Substance: NALOXONE

REACTIONS (1)
  - Urticaria [None]
